FAERS Safety Report 4491988-1 (Version None)
Quarter: 2004Q4

REPORT INFORMATION
  Report Type: 
  Country: None (occurrence: None)
  Receive Date: 20041103
  Receipt Date: 20040106
  Transmission Date: 20050328
  Serious: Yes (Hospitalization)
  Sender: FDA-Public Use
  Company Number: PHFR2004GB00490

PATIENT
  Age: 38 Year
  Sex: Male

DRUGS (8)
  1. CYCLOSPORINE [Suspect]
     Indication: RENAL TRANSPLANT
     Dosage: 225MG/DAY
     Route: 065
     Dates: start: 20020527
  2. APROVEL [Suspect]
     Indication: HYPERTENSION
     Dosage: 150MG/DAY
     Route: 048
     Dates: start: 20030401, end: 20031001
  3. DOXAZOSIN [Suspect]
     Route: 065
  4. PREDNISOLONE [Concomitant]
     Indication: RENAL TRANSPLANT
     Dosage: 10MG/DAY
     Route: 048
     Dates: start: 20000427
  5. AMLODIPINE [Concomitant]
     Indication: HYPERTENSION
     Dosage: 10MG/DAY
     Route: 048
     Dates: start: 20000101
  6. SIMVASTATIN [Concomitant]
     Indication: HYPERCHOLESTEROLAEMIA
     Dosage: 20MG/DAY
     Route: 048
     Dates: start: 20000101
  7. LANSOPRAZOLE [Concomitant]
     Indication: PROPHYLAXIS
     Dosage: 15MG/DAY
     Route: 048
     Dates: start: 20000427
  8. INSULIN [Concomitant]
     Indication: DIABETES MELLITUS
     Route: 058
     Dates: start: 19870101

REACTIONS (8)
  - COUGH [None]
  - DYSPHAGIA [None]
  - GASTROSTOMY TUBE INSERTION [None]
  - HOARSENESS [None]
  - LARYNGEAL OEDEMA [None]
  - PHARYNGEAL OEDEMA [None]
  - PHARYNGOLARYNGEAL PAIN [None]
  - VOCAL CORD PARALYSIS [None]
